FAERS Safety Report 7031524-9 (Version None)
Quarter: 2010Q4

REPORT INFORMATION
  Report Type: 
  Country: None (occurrence: None)
  Receive Date: 20101006
  Receipt Date: 20101001
  Transmission Date: 20110411
  Serious: Yes (Hospitalization, Disabling, Other)
  Sender: FDA-Public Use
  Company Number: US-MERCK-1004USA04608

PATIENT
  Age: 52 Year
  Sex: Female
  Weight: 74 kg

DRUGS (8)
  1. FOSAMAX [Suspect]
     Indication: OSTEOPOROSIS
     Route: 048
     Dates: start: 20010128, end: 20010401
  2. FOSAMAX [Suspect]
     Route: 048
     Dates: start: 19930101, end: 19960101
  3. FOSAMAX [Suspect]
     Route: 048
     Dates: start: 20000101, end: 20090101
  4. FOSAMAX [Suspect]
     Indication: OSTEOPENIA
     Route: 048
     Dates: start: 20010128, end: 20010401
  5. FOSAMAX [Suspect]
     Route: 048
     Dates: start: 19930101, end: 19960101
  6. FOSAMAX [Suspect]
     Route: 048
     Dates: start: 20000101, end: 20090101
  7. ALENDRONATE SODIUM [Suspect]
     Route: 048
     Dates: start: 20080217, end: 20100310
  8. SYNTHROID [Concomitant]
     Indication: HYPOTHYROIDISM
     Route: 065
     Dates: start: 19810101

REACTIONS (54)
  - ACTIVITIES OF DAILY LIVING IMPAIRED [None]
  - ANXIETY [None]
  - ARTHRALGIA [None]
  - ASTHENIA [None]
  - BALANCE DISORDER [None]
  - BLOOD DISORDER [None]
  - BONE CALLUS EXCESSIVE [None]
  - BONE DISORDER [None]
  - BREAST DISORDER [None]
  - BURSITIS [None]
  - CERUMEN IMPACTION [None]
  - DEEP VEIN THROMBOSIS [None]
  - EMOTIONAL DISTRESS [None]
  - FACIAL BONES FRACTURE [None]
  - FALL [None]
  - FEMUR FRACTURE [None]
  - FOOT FRACTURE [None]
  - GAIT DISTURBANCE [None]
  - HAEMORRHAGE [None]
  - HEADACHE [None]
  - HIP FRACTURE [None]
  - HYPERLIPIDAEMIA [None]
  - HYPERTENSION [None]
  - HYPOKINESIA [None]
  - INJURY [None]
  - JOINT STIFFNESS [None]
  - LOSS OF CONTROL OF LEGS [None]
  - LOW TURNOVER OSTEOPATHY [None]
  - MEDICAL DEVICE PAIN [None]
  - MENISCUS LESION [None]
  - METASTASES TO BONE [None]
  - MUSCLE STRAIN [None]
  - MUSCULOSKELETAL DISCOMFORT [None]
  - OBESITY [None]
  - OEDEMA PERIPHERAL [None]
  - PAIN IN EXTREMITY [None]
  - PATHOLOGICAL FRACTURE [None]
  - PERIARTHRITIS [None]
  - POSTOPERATIVE THROMBOSIS [None]
  - PROCEDURAL PAIN [None]
  - PRODUCT SUBSTITUTION ISSUE [None]
  - SCAR [None]
  - SINUS HEADACHE [None]
  - SINUSITIS [None]
  - STRESS FRACTURE [None]
  - TENDON DISORDER [None]
  - THROMBOSIS [None]
  - TOOTH DISORDER [None]
  - TRAUMATIC BRAIN INJURY [None]
  - URINE ANALYSIS ABNORMAL [None]
  - UTERINE DISORDER [None]
  - VIRAL UPPER RESPIRATORY TRACT INFECTION [None]
  - VISUAL IMPAIRMENT [None]
  - VITAMIN D DEFICIENCY [None]
